FAERS Safety Report 20651738 (Version 1)
Quarter: 2022Q1

REPORT INFORMATION
  Report Type: Other
  Country: CA (occurrence: CA)
  Receive Date: 20220330
  Receipt Date: 20220330
  Transmission Date: 20220423
  Serious: Yes (Other)
  Sender: FDA-Public Use
  Company Number: CA-APOTEX-2022AP005238

PATIENT
  Age: 60 Year
  Sex: Male

DRUGS (1)
  1. DESOXIMETASONE [Suspect]
     Active Substance: DESOXIMETASONE
     Indication: Dermatitis
     Dosage: UNK
     Route: 061

REACTIONS (2)
  - Dermatitis bullous [Unknown]
  - Dermatitis contact [Unknown]
